FAERS Safety Report 7986235-X (Version None)
Quarter: 2011Q4

REPORT INFORMATION
  Report Type: 
  Country: None (occurrence: None)
  Receive Date: 20111216
  Receipt Date: 20111207
  Transmission Date: 20120403
  Serious: Yes (Death)
  Sender: FDA-Public Use
  Company Number: BR-GLAXOSMITHKLINE-B0769519B

PATIENT

DRUGS (1)
  1. CLOBETASOL PROPIONATE [Suspect]
     Route: 064

REACTIONS (8)
  - FOETAL DISTRESS SYNDROME [None]
  - TRICUSPID VALVE INCOMPETENCE [None]
  - DUCTUS ARTERIOSUS PREMATURE CLOSURE [None]
  - PLEURAL EFFUSION [None]
  - MATERNAL EXPOSURE DURING PREGNANCY [None]
  - PERICARDIAL EFFUSION [None]
  - DEATH [None]
  - PULMONARY VALVE INCOMPETENCE [None]
